FAERS Safety Report 24064657 (Version 1)
Quarter: 2024Q3

REPORT INFORMATION
  Report Type: Spontaneous
  Country: JP (occurrence: JP)
  Receive Date: 20240709
  Receipt Date: 20240709
  Transmission Date: 20241017
  Serious: Yes (Life-Threatening, Hospitalization)
  Sender: BAYER
  Company Number: JP-BAYER-2024A095935

PATIENT
  Sex: Female

DRUGS (1)
  1. YAZ [Suspect]
     Active Substance: DROSPIRENONE\ETHINYL ESTRADIOL
     Indication: Uterine leiomyoma
     Dosage: UNK
     Route: 048
     Dates: start: 202406

REACTIONS (5)
  - Pyrexia [None]
  - Meningitis [None]
  - Headache [None]
  - Physical deconditioning [None]
  - Off label use [None]

NARRATIVE: CASE EVENT DATE: 20240627
